FAERS Safety Report 13961538 (Version 3)
Quarter: 2017Q4

REPORT INFORMATION
  Report Type: Spontaneous
  Country: MX (occurrence: MX)
  Receive Date: 20170912
  Receipt Date: 20171221
  Transmission Date: 20180320
  Serious: Yes (Death, Life-Threatening, Hospitalization, Other)
  Sender: FDA-Public Use
  Company Number: MX-SA-2017SA166510

PATIENT
  Age: 56 Year
  Sex: Female

DRUGS (8)
  1. PREDNISONE. [Suspect]
     Active Substance: PREDNISONE
     Indication: IMMUNOSUPPRESSANT DRUG THERAPY
     Route: 065
  2. MYCOPHENOLATE MOFETIL. [Suspect]
     Active Substance: MYCOPHENOLATE MOFETIL
     Indication: IMMUNOSUPPRESSANT DRUG THERAPY
     Route: 065
  3. MYCOPHENOLATE MOFETIL. [Suspect]
     Active Substance: MYCOPHENOLATE MOFETIL
     Indication: IMMUNOMODULATORY THERAPY
     Route: 065
  4. TACROLIMUS. [Suspect]
     Active Substance: TACROLIMUS
     Indication: IMMUNOMODULATORY THERAPY
     Route: 065
  5. IMIPENEM [Suspect]
     Active Substance: IMIPENEM
     Indication: IMMUNOSUPPRESSANT DRUG THERAPY
     Route: 042
  6. PREDNISONE. [Suspect]
     Active Substance: PREDNISONE
     Indication: IMMUNOMODULATORY THERAPY
     Route: 065
  7. TACROLIMUS. [Suspect]
     Active Substance: TACROLIMUS
     Indication: IMMUNOSUPPRESSANT DRUG THERAPY
     Route: 065
  8. THYMOGLOBULIN [Suspect]
     Active Substance: LAPINE T-LYMPHOCYTE IMMUNE GLOBULIN
     Indication: IMMUNOMODULATORY THERAPY
     Route: 041

REACTIONS (7)
  - Pyrexia [Fatal]
  - Cough [Fatal]
  - Haemoptysis [Fatal]
  - Mucormycosis [Fatal]
  - Disease progression [Fatal]
  - Productive cough [Fatal]
  - Dyspnoea exertional [Fatal]
